FAERS Safety Report 7771053-8 (Version None)
Quarter: 2011Q3

REPORT INFORMATION
  Report Type: 
  Country: None (occurrence: None)
  Receive Date: 20110922
  Receipt Date: 20110412
  Transmission Date: 20111222
  Serious: Yes (Hospitalization)
  Sender: FDA-Public Use
  Company Number: US-ASTRAZENECA-2011SE21123

PATIENT
  Age: 82 Year
  Sex: Female
  Weight: 77.1 kg

DRUGS (9)
  1. NORVASC [Concomitant]
  2. SEROQUEL [Suspect]
     Route: 048
     Dates: start: 20090101
  3. SEROQUEL [Suspect]
     Indication: INSOMNIA
     Route: 048
     Dates: start: 20090101, end: 20090101
  4. DIAZIDE [Concomitant]
  5. SEROQUEL [Suspect]
     Route: 048
     Dates: start: 20090101
  6. LOPRESSOR [Concomitant]
  7. XANAX [Concomitant]
  8. SEROQUEL [Suspect]
     Indication: DEPRESSION
     Route: 048
     Dates: start: 20090101, end: 20090101
  9. RIMERON [Concomitant]
     Indication: DEPRESSION

REACTIONS (4)
  - OFF LABEL USE [None]
  - HYPERTENSION [None]
  - NIGHTMARE [None]
  - HYPOACUSIS [None]
